FAERS Safety Report 23271761 (Version 1)
Quarter: 2023Q4

REPORT INFORMATION
  Report Type: Spontaneous
  Country: US (occurrence: US)
  Receive Date: 20231207
  Receipt Date: 20231207
  Transmission Date: 20240109
  Serious: Yes (Death)
  Sender: FDA-Public Use
  Company Number: US-PFIZER INC-202300427470

PATIENT
  Age: 84 Year
  Sex: Male

DRUGS (2)
  1. PAXLOVID [Interacting]
     Active Substance: NIRMATRELVIR\RITONAVIR
     Indication: COVID-19 treatment
     Dosage: UNK
     Dates: start: 20230929, end: 20231002
  2. TACROLIMUS [Interacting]
     Active Substance: TACROLIMUS
     Dosage: UNK

REACTIONS (2)
  - Drug interaction [Fatal]
  - Immunosuppressant drug level increased [Fatal]

NARRATIVE: CASE EVENT DATE: 20231003
